FAERS Safety Report 9024702 (Version 2)
Quarter: 2013Q2

REPORT INFORMATION
  Report Type: Spontaneous
  Country: US (occurrence: US)
  Receive Date: 20130121
  Receipt Date: 20130405
  Transmission Date: 20140414
  Serious: Yes (Hospitalization)
  Sender: FDA-Public Use
  Company Number: US-BIOGENIDEC-2005BI017095

PATIENT
  Age: 45 Year
  Sex: Male
  Weight: 147 kg

DRUGS (2)
  1. AVONEX [Suspect]
     Indication: MULTIPLE SCLEROSIS
     Route: 030
     Dates: start: 19981003, end: 20100605
  2. AVONEX [Suspect]
     Indication: MULTIPLE SCLEROSIS
     Route: 030
     Dates: start: 20110101

REACTIONS (27)
  - Spinal operation [Recovered/Resolved]
  - Cellulitis [Recovered/Resolved]
  - Fall [Recovered/Resolved]
  - Multiple sclerosis relapse [Recovered/Resolved]
  - Motor dysfunction [Not Recovered/Not Resolved]
  - Cystitis [Unknown]
  - Drug intolerance [Unknown]
  - Urinary tract infection [Recovered/Resolved]
  - Nasopharyngitis [Recovered/Resolved]
  - Influenza like illness [Recovered/Resolved]
  - Vomiting [Recovered/Resolved]
  - Arthralgia [Unknown]
  - Joint stiffness [Unknown]
  - Depression [Not Recovered/Not Resolved]
  - Post procedural complication [Recovered/Resolved]
  - Wound infection staphylococcal [Recovered/Resolved]
  - Pharyngitis streptococcal [Recovered/Resolved]
  - Spinal compression fracture [Not Recovered/Not Resolved]
  - Bone disorder [Unknown]
  - Facial bones fracture [Unknown]
  - Tooth loss [Unknown]
  - Hand fracture [Unknown]
  - General physical health deterioration [Not Recovered/Not Resolved]
  - Gait disturbance [Not Recovered/Not Resolved]
  - Mobility decreased [Not Recovered/Not Resolved]
  - Muscle tightness [Not Recovered/Not Resolved]
  - Asthenia [Unknown]
